FAERS Safety Report 21937011 (Version 1)
Quarter: 2023Q1

REPORT INFORMATION
  Report Type: Spontaneous
  Country: US (occurrence: None)
  Receive Date: 20230131
  Receipt Date: 20230131
  Transmission Date: 20230418
  Serious: No
  Sender: FDA-Public Use
  Company Number: None

PATIENT
  Sex: 0

DRUGS (1)
  1. EZETIMIBE [Suspect]
     Active Substance: EZETIMIBE

REACTIONS (2)
  - Back pain [None]
  - Muscle spasms [None]
